FAERS Safety Report 15145146 (Version 2)
Quarter: 2019Q4

REPORT INFORMATION
  Report Type: Spontaneous
  Country: US (occurrence: US)
  Receive Date: 20180713
  Receipt Date: 20191121
  Transmission Date: 20200122
  Serious: No
  Sender: FDA-Public Use
  Company Number: US-INTERCEPT-PMOCA2016000146

PATIENT
  Age: 51 Year
  Sex: Female

DRUGS (31)
  1. PANTOPRAZOLE [Concomitant]
     Active Substance: PANTOPRAZOLE
     Dosage: 40 UNK, UNK
     Dates: start: 20170927, end: 20171126
  2. ESTROGEL [Concomitant]
     Active Substance: ESTRADIOL
     Dosage: UNK
     Dates: start: 20180224, end: 20180425
  3. HYDROXYZINE [Concomitant]
     Active Substance: HYDROXYZINE HYDROCHLORIDE
     Dosage: 25 UNK, UNK
     Dates: start: 20180301, end: 20180331
  4. INTRAROSA [Concomitant]
     Active Substance: PRASTERONE
     Dosage: 6.5 MG, UNK
     Dates: start: 20171208, end: 20180507
  5. DECARA [Concomitant]
     Dosage: 50000 UNK, UNK
     Dates: start: 20171206, end: 20171214
  6. ASPIRIN. [Concomitant]
     Active Substance: ASPIRIN
  7. ESTROGEL [Concomitant]
     Active Substance: ESTRADIOL
     Dosage: UNK
     Dates: start: 20180319, end: 20180518
  8. ROSUVASTATIN. [Concomitant]
     Active Substance: ROSUVASTATIN
     Dosage: 10 UNK, UNK
     Dates: start: 20170911, end: 20171208
  9. BENAZEP [Concomitant]
     Dosage: 10-12.5
     Dates: start: 20171130, end: 20180129
  10. PANTOPRAZOLE [Concomitant]
     Active Substance: PANTOPRAZOLE
     Dosage: 40 UNK, UNK
     Dates: start: 20171231, end: 20180425
  11. PANTOPRAZOLE [Concomitant]
     Active Substance: PANTOPRAZOLE
     Dosage: 40 UNK, UNK
     Dates: start: 20180330, end: 20180529
  12. HYDROXYZINE [Concomitant]
     Active Substance: HYDROXYZINE HYDROCHLORIDE
     Dosage: 25 MG, UNK
     Dates: start: 20180111, end: 20180312
  13. ROSUVASTATIN. [Concomitant]
     Active Substance: ROSUVASTATIN
     Dosage: 10 UNK, UNK
     Dates: start: 20171231, end: 20180410
  14. BENAZEP [Concomitant]
     Dosage: 10-12.5
     Dates: start: 20170928, end: 20171127
  15. PANTOPRAZOLE [Concomitant]
     Active Substance: PANTOPRAZOLE
     Dosage: 40 MG, UNK
     Dates: start: 20170705, end: 20171030
  16. PANTOPRAZOLE [Concomitant]
     Active Substance: PANTOPRAZOLE
     Dosage: 40 UNK, UNK
     Dates: start: 20170928, end: 20171127
  17. OCALIVA [Suspect]
     Active Substance: OBETICHOLIC ACID
     Dosage: 5 MG, QD
     Route: 048
  18. BENAZEP [Concomitant]
     Dosage: 10-12.5
     Dates: start: 20171027, end: 20171226
  19. BENAZEP [Concomitant]
     Dosage: 10-12.5
     Dates: start: 20180330, end: 20180529
  20. PANTOPRAZOLE [Concomitant]
     Active Substance: PANTOPRAZOLE
     Dosage: 40 UNK, UNK
     Dates: start: 20171027, end: 20171226
  21. PANTOPRAZOLE [Concomitant]
     Active Substance: PANTOPRAZOLE
     Dosage: 40 UNK, UNK
     Dates: start: 20171130, end: 20180129
  22. ROSUVASTATIN. [Concomitant]
     Active Substance: ROSUVASTATIN
     Dosage: 10 MG, UNK
     Dates: start: 20171109, end: 20180108
  23. OCALIVA [Suspect]
     Active Substance: OBETICHOLIC ACID
     Indication: PRIMARY BILIARY CHOLANGITIS
     Dosage: 5 MG, QD
     Route: 048
     Dates: start: 2015
  24. ROSUVASTATIN. [Concomitant]
     Active Substance: ROSUVASTATIN
     Dosage: 10 MG, UNK
     Dates: start: 20171106, end: 20180105
  25. DECARA [Concomitant]
     Dosage: 50000 UNK, UNK
     Dates: start: 20170911, end: 20171202
  26. DECARA [Concomitant]
     Dosage: 50000 UNK, UNK
     Dates: start: 20171110, end: 20171118
  27. ROSUVASTATIN. [Concomitant]
     Active Substance: ROSUVASTATIN
     Dosage: 10 UNK, UNK
     Dates: start: 20180312, end: 20180511
  28. NITROGLYCERIN. [Concomitant]
     Active Substance: NITROGLYCERIN
  29. ONDANSETRON [Concomitant]
     Active Substance: ONDANSETRON
     Dosage: 4 MG, UNK
     Dates: start: 20180301, end: 20180321
  30. BENAZEP [Concomitant]
     Dosage: 10-12.5
     Dates: start: 20171231, end: 20180425
  31. HYDROXYZINE [Concomitant]
     Active Substance: HYDROXYZINE HYDROCHLORIDE
     Dosage: 25 UNK, UNK
     Dates: start: 20180209, end: 20180410

REACTIONS (4)
  - Drug ineffective [Unknown]
  - Therapy cessation [Recovered/Resolved]
  - Blood alkaline phosphatase increased [Unknown]
  - Pruritus [Not Recovered/Not Resolved]

NARRATIVE: CASE EVENT DATE: 20161128
